FAERS Safety Report 9412119 (Version 1)
Quarter: 2013Q2

REPORT INFORMATION
  Report Type: Spontaneous
  Country: US (occurrence: None)
  Receive Date: 20130416
  Receipt Date: 20130416
  Transmission Date: 20140414
  Serious: Yes (Hospitalization, Other)
  Sender: FDA-Public Use
  Company Number: 2013P1003481

PATIENT
  Age: 77 Year
  Sex: Female
  Weight: 72.58 kg

DRUGS (12)
  1. LOSARTAN POTASSIUM [Suspect]
     Indication: HYPERTENSION
     Route: 048
     Dates: start: 20121102
  2. LOSARTAN POTASSIUM [Suspect]
     Indication: ATRIAL FIBRILLATION
     Route: 048
     Dates: start: 20121102
  3. WARFARIN [Suspect]
     Dates: end: 201303
  4. SYNTHROID [Suspect]
  5. MULTAQ [Suspect]
     Dates: start: 20130312
  6. AMIODARONE [Suspect]
     Dates: end: 201303
  7. CENTRUM SILVER [Concomitant]
  8. FISH OIL [Concomitant]
  9. VITAMIN D3 [Concomitant]
  10. CRANBERRY SUPPLEMENT [Concomitant]
  11. MAGNESIUM [Concomitant]
  12. ASPIRIN [Concomitant]

REACTIONS (5)
  - Feeling cold [None]
  - Tremor [None]
  - Supraventricular extrasystoles [None]
  - Tricuspid valve incompetence [None]
  - Drug interaction [None]
